FAERS Safety Report 4870919-6 (Version None)
Quarter: 2005Q4

REPORT INFORMATION
  Report Type: 
  Country: None (occurrence: None)
  Receive Date: 20051228
  Receipt Date: 20051207
  Transmission Date: 20060501
  Serious: Yes (Death)
  Sender: FDA-Public Use
  Company Number: JP_051108096

PATIENT
  Age: 76 Year
  Sex: Male

DRUGS (8)
  1. GEMZAR [Suspect]
     Indication: BILE DUCT CANCER
     Dosage: SEE IMAGE
     Route: 042
     Dates: start: 20050816, end: 20050830
  2. GEMZAR [Suspect]
     Indication: BILE DUCT CANCER
     Dosage: SEE IMAGE
     Route: 042
     Dates: start: 20050913, end: 20050927
  3. GASTER D (FAMOTIDINE) TABLET [Concomitant]
  4. RINDERON (BETAMETHASONE) TABLET [Concomitant]
  5. GASTROM (ECABET MONOSODIUM) [Concomitant]
  6. LOXONIN (LOXOPROFEN SODIUM) TABLET [Concomitant]
  7. NAIXIN (NAPROXEN SODIUM) TABLET [Concomitant]
  8. SEROTONE (AZASETRON HYDROCHLORIDE) [Concomitant]

REACTIONS (9)
  - ASCITES [None]
  - BLOOD BETA-D-GLUCAN INCREASED [None]
  - BLOOD PH INCREASED [None]
  - PLATELET COUNT DECREASED [None]
  - PLEURAL EFFUSION [None]
  - PNEUMOCYSTIS JIROVECI PNEUMONIA [None]
  - PNEUMONIA VIRAL [None]
  - PNEUMONITIS [None]
  - RESPIRATORY FAILURE [None]
